FAERS Safety Report 7428540-1 (Version None)
Quarter: 2011Q2

REPORT INFORMATION
  Report Type: 
  Country: None (occurrence: None)
  Receive Date: 20110421
  Receipt Date: 20110413
  Transmission Date: 20111010
  Serious: Yes (Other)
  Sender: FDA-Public Use
  Company Number: US-ASTRAZENECA-2009UW14366

PATIENT
  Age: 37 Year
  Sex: Female
  Weight: 103.4 kg

DRUGS (14)
  1. SEROQUEL [Suspect]
     Indication: BIPOLAR DISORDER
     Route: 048
     Dates: start: 20020101
  2. TRAZODONE HCL [Concomitant]
     Indication: BIPOLAR DISORDER
     Dates: start: 20080701
  3. PRILOSEC OTC [Concomitant]
  4. SEROQUEL [Suspect]
     Indication: BIPOLAR I DISORDER
     Route: 048
     Dates: start: 20020101
  5. AMBIEN [Concomitant]
     Indication: SLEEP DISORDER
     Dates: start: 20080701
  6. XANAX [Concomitant]
     Indication: ANXIETY
     Dates: start: 20080305
  7. ABILIFY [Concomitant]
     Dates: start: 19970101
  8. CLOZARIL [Concomitant]
     Dates: start: 19990101
  9. SEROQUEL [Suspect]
     Route: 048
     Dates: start: 20080709
  10. SEROQUEL [Suspect]
     Route: 048
     Dates: start: 20080709
  11. SEROQUEL [Suspect]
     Route: 048
     Dates: start: 20070326
  12. SEROQUEL [Suspect]
     Route: 048
     Dates: start: 20070326
  13. PAXIL [Concomitant]
     Indication: BIPOLAR DISORDER
     Dates: start: 20080305
  14. ELMIRON [Concomitant]

REACTIONS (11)
  - TYPE 2 DIABETES MELLITUS [None]
  - HYPERLIPIDAEMIA [None]
  - GASTRIC DISORDER [None]
  - OBESITY [None]
  - BLOOD CHOLESTEROL INCREASED [None]
  - METABOLIC SYNDROME [None]
  - DYSLIPIDAEMIA [None]
  - WEIGHT DECREASED [None]
  - WEIGHT INCREASED [None]
  - GASTROINTESTINAL DISORDER [None]
  - BLOOD TRIGLYCERIDES INCREASED [None]
